FAERS Safety Report 5624325-7 (Version None)
Quarter: 2008Q1

REPORT INFORMATION
  Report Type: 
  Country: None (occurrence: None)
  Receive Date: 20080211
  Receipt Date: 20080211
  Transmission Date: 20080703
  Serious: Yes (Hospitalization)
  Sender: FDA-Public Use
  Company Number: None

PATIENT
  Age: 66 Year
  Sex: Male
  Weight: 87.5442 kg

DRUGS (8)
  1. SUTENT [Suspect]
     Indication: RENAL CELL CARCINOMA
     Dosage: 25 MG PER DAY PO
     Route: 048
     Dates: start: 20071002, end: 20080205
  2. TARCEVA [Suspect]
     Indication: RENAL CELL CARCINOMA
     Dosage: 100 MG PER DAY PO
     Route: 048
     Dates: start: 20071002, end: 20080205
  3. ATENOLOL [Concomitant]
  4. PREVACID [Concomitant]
  5. ALLOPURINOL [Concomitant]
  6. BENICAR [Concomitant]
  7. ALLEGRA [Concomitant]
  8. FEXOFENADINE [Concomitant]

REACTIONS (1)
  - ANAEMIA [None]
